FAERS Safety Report 21722527 (Version 1)
Quarter: 2022Q4

REPORT INFORMATION
  Report Type: Spontaneous
  Country: US (occurrence: None)
  Receive Date: 20221212
  Receipt Date: 20221212
  Transmission Date: 20230112
  Serious: No
  Sender: FDA-Public Use
  Company Number: None

PATIENT
  Age: 72 Year
  Sex: Male
  Weight: 149.69 kg

DRUGS (9)
  1. ABIRATERONE ACETATE [Suspect]
     Active Substance: ABIRATERONE ACETATE
     Dosage: FREQUENCY : DAILY;?
     Route: 048
  2. ASPIRIN [Concomitant]
     Active Substance: ASPIRIN
  3. BENAZEPRIL [Concomitant]
     Active Substance: BENAZEPRIL HYDROCHLORIDE
  4. DOFETILIDE [Concomitant]
     Active Substance: DOFETILIDE
  5. LUPRON MAGNESIUM [Concomitant]
  6. METOPROLOL [Concomitant]
     Active Substance: METOPROLOL
  7. PRSDNISONE [Concomitant]
  8. ROSUVASTATIN [Concomitant]
     Active Substance: ROSUVASTATIN
  9. XARELTO [Concomitant]
     Active Substance: RIVAROXABAN

REACTIONS (3)
  - Urinary bladder haemorrhage [None]
  - Pneumonia [None]
  - Gallbladder disorder [None]
